FAERS Safety Report 6081280-6 (Version None)
Quarter: 2009Q1

REPORT INFORMATION
  Report Type: 
  Country: None (occurrence: None)
  Receive Date: 20090213
  Receipt Date: 20090202
  Transmission Date: 20090719
  Serious: Yes (Other)
  Sender: FDA-Public Use
  Company Number: 2009AP000433

PATIENT
  Age: 59 Year
  Sex: Female

DRUGS (1)
  1. FLUOXETINE HYDROCHLORIDE [Suspect]

REACTIONS (2)
  - HEPATOCELLULAR INJURY [None]
  - LIVER TRANSPLANT [None]
